FAERS Safety Report 21567035 (Version 5)
Quarter: 2022Q4

REPORT INFORMATION
  Report Type: Spontaneous
  Country: US (occurrence: US)
  Receive Date: 20221108
  Receipt Date: 20221215
  Transmission Date: 20230113
  Serious: No
  Sender: FDA-Public Use
  Company Number: US-PFIZER INC-202201256119

PATIENT
  Age: 10 Year
  Sex: Male
  Weight: 30.839 kg

DRUGS (1)
  1. GENOTROPIN [Suspect]
     Active Substance: SOMATROPIN
     Indication: Short stature
     Dosage: 1 MG ONE DAY AND 1.2 MG THE NEXT
     Dates: start: 202208

REACTIONS (5)
  - Product prescribing error [Recovered/Resolved]
  - Intentional product misuse [Recovered/Resolved]
  - Device malfunction [Recovered/Resolved]
  - Wrong technique in device usage process [Recovered/Resolved]
  - Device leakage [Recovered/Resolved]

NARRATIVE: CASE EVENT DATE: 20220801
